FAERS Safety Report 16963863 (Version 3)
Quarter: 2019Q4

REPORT INFORMATION
  Report Type: Report from Study
  Country: IT (occurrence: IT)
  Receive Date: 20191026
  Receipt Date: 20191217
  Transmission Date: 20200122
  Serious: Yes (Hospitalization)
  Sender: FDA-Public Use
  Company Number: IT-ACCORD-159050

PATIENT
  Age: 77 Year
  Sex: Female
  Weight: 54 kg

DRUGS (2)
  1. METHOTREXATE. [Suspect]
     Active Substance: METHOTREXATE
     Indication: RHEUMATOID ARTHRITIS
     Dosage: STRENGTH: 2.5 MG
     Route: 048
  2. METHOTREXATE. [Suspect]
     Active Substance: METHOTREXATE
     Indication: RHEUMATOID ARTHRITIS
     Dosage: STRENGTH: 2.5 MG
     Route: 058
     Dates: start: 20190823, end: 20190927

REACTIONS (7)
  - Thrombocytopenia [Recovering/Resolving]
  - Pancytopenia [Recovered/Resolved]
  - Mucosal inflammation [Recovered/Resolved]
  - Vomiting [Recovered/Resolved]
  - Leukopenia [Recovering/Resolving]
  - Hypertransaminasaemia [Recovered/Resolved]
  - Vertigo [Recovered/Resolved]

NARRATIVE: CASE EVENT DATE: 20190927
